FAERS Safety Report 9803260 (Version 1)
Quarter: 2014Q1

REPORT INFORMATION
  Report Type: Spontaneous
  Country: US (occurrence: None)
  Receive Date: 20140107
  Receipt Date: 20140107
  Transmission Date: 20141002
  Serious: Yes (Death)
  Sender: FDA-Public Use
  Company Number: None

PATIENT
  Age: 68 Year
  Sex: Male
  Weight: 90.72 kg

DRUGS (1)
  1. ALBUTEROL SULFATE 0.083 2.5 MG/ 3ML NEPHRON PHARMACEUTICALS CORPORATIO [Suspect]
     Indication: CHRONIC OBSTRUCTIVE PULMONARY DISEASE
     Dosage: ONE VIAL AS NEEDED INHALATION
     Route: 055
     Dates: start: 20130801, end: 20131030

REACTIONS (3)
  - Rash pruritic [None]
  - Pyrexia [None]
  - Convulsion [None]
